FAERS Safety Report 4433178-4 (Version None)
Quarter: 2004Q3

REPORT INFORMATION
  Report Type: 
  Country: None (occurrence: None)
  Receive Date: 20040823
  Receipt Date: 20040813
  Transmission Date: 20050211
  Serious: Yes (Hospitalization)
  Sender: FDA-Public Use
  Company Number: 2000080025

PATIENT
  Age: 69 Year
  Sex: Female

DRUGS (1)
  1. DORAL [Suspect]
     Indication: INSOMNIA
     Dosage: 15 MG/D, PO
     Route: 048
     Dates: start: 20000620, end: 20000727

REACTIONS (4)
  - ALANINE AMINOTRANSFERASE INCREASED [None]
  - ASPARTATE AMINOTRANSFERASE INCREASED [None]
  - BLOOD LACTATE DEHYDROGENASE INCREASED [None]
  - HEPATIC FUNCTION ABNORMAL [None]
